FAERS Safety Report 7747221-8 (Version None)
Quarter: 2011Q3

REPORT INFORMATION
  Report Type: 
  Country: None (occurrence: None)
  Receive Date: 20110913
  Receipt Date: 20110907
  Transmission Date: 20111222
  Serious: Yes (Other)
  Sender: FDA-Public Use
  Company Number: HU-PFIZER INC-2011211675

PATIENT
  Age: 72 Year
  Sex: Female
  Weight: 85 kg

DRUGS (12)
  1. RABEPRAZOLE [Concomitant]
     Dosage: UNK
  2. XANAX [Concomitant]
  3. CHINOTAL [Concomitant]
  4. ISOPTIN [Concomitant]
  5. TELMISARTAN [Concomitant]
  6. METFORMIN [Concomitant]
     Dosage: UNK
  7. ASPIRIN [Concomitant]
     Dosage: UNK
  8. FUROSEMIDE [Concomitant]
  9. KALIUM [Concomitant]
  10. ATORVASTATIN CALCIUM [Suspect]
     Indication: BLOOD CHOLESTEROL INCREASED
     Dosage: UNK
     Dates: start: 20110701, end: 20110701
  11. DOMPERIDONE [Concomitant]
  12. ATORVASTATIN CALCIUM [Concomitant]

REACTIONS (2)
  - ASPHYXIA [None]
  - DYSPNOEA [None]
